FAERS Safety Report 8073073-5 (Version None)
Quarter: 2012Q1

REPORT INFORMATION
  Report Type: 
  Country: None (occurrence: None)
  Receive Date: 20120126
  Receipt Date: 20120118
  Transmission Date: 20120608
  Serious: Yes (Hospitalization)
  Sender: FDA-Public Use
  Company Number: FR-BRISTOL-MYERS SQUIBB COMPANY-16359432

PATIENT
  Age: 72 Year
  Sex: Female

DRUGS (3)
  1. FLECAINIDE ACETATE [Concomitant]
     Indication: VENTRICULAR ARRHYTHMIA
     Dosage: LONG-TERM,SCORED TABS,FLECAINE 100 SR
     Route: 048
  2. ASPIRIN [Concomitant]
     Indication: PROPHYLAXIS
     Dosage: POWDER FOR ORAL SOLUTION IN SACHET,LONG-TERM
     Route: 048
  3. KENACORT [Suspect]
     Indication: ECZEMA
     Dosage: 1 DF : 0.0111 UNITS NOS,1 INJ,FOR THE PAST 8 YEARS,LONG-TERM
     Route: 030

REACTIONS (4)
  - OSTEOPOROSIS [None]
  - SKIN LESION [None]
  - PUBIS FRACTURE [None]
  - FALL [None]
